FAERS Safety Report 20150131 (Version 1)
Quarter: 2021Q4

REPORT INFORMATION
  Report Type: Spontaneous
  Country: HR (occurrence: HR)
  Receive Date: 20211206
  Receipt Date: 20211206
  Transmission Date: 20220304
  Serious: Yes (Other)
  Sender: FDA-Public Use
  Company Number: HR-009507513-2112HRV000514

PATIENT
  Age: 69 Year
  Sex: Male

DRUGS (1)
  1. KEYTRUDA [Suspect]
     Active Substance: PEMBROLIZUMAB
     Dosage: 1ST DOSE
     Route: 042
     Dates: start: 201904

REACTIONS (7)
  - Pulmonary embolism [Unknown]
  - Deep vein thrombosis [Unknown]
  - Brain oedema [Recovered/Resolved]
  - Hypothyroidism [Unknown]
  - Type 1 diabetes mellitus [Unknown]
  - Central nervous system lesion [Recovered/Resolved]
  - Hypermetabolism [Unknown]

NARRATIVE: CASE EVENT DATE: 20190501
